FAERS Safety Report 7875425-2 (Version None)
Quarter: 2011Q4

REPORT INFORMATION
  Report Type: 
  Country: None (occurrence: None)
  Receive Date: 20111031
  Receipt Date: 20111019
  Transmission Date: 20120403
  Serious: Yes (Hospitalization, Other)
  Sender: FDA-Public Use
  Company Number: PHHY2011NZ80349

PATIENT
  Sex: Male

DRUGS (8)
  1. CLOZARIL [Suspect]
     Indication: SCHIZOPHRENIA
     Dates: start: 20110628, end: 20110701
  2. CLOZARIL [Suspect]
     Dates: start: 20110630
  3. DOXAZOSIN MESYLATE [Concomitant]
     Dosage: 2 MG, BID
  4. VALPROATE SODIUM [Concomitant]
     Dosage: 500 MG, NOCTE
  5. VALPROATE SODIUM [Concomitant]
     Dosage: 200 MG, MANE
  6. LORAZEPAM [Concomitant]
     Dosage: 0.5 MG, PRN
  7. METFORMIN HCL [Concomitant]
     Dosage: 500 MG, BID
  8. LORAZEPAM [Concomitant]
     Dosage: 1 MG, PRN
     Dates: start: 20110630, end: 20110701

REACTIONS (7)
  - TROPONIN T INCREASED [None]
  - MALAISE [None]
  - C-REACTIVE PROTEIN INCREASED [None]
  - MYOCARDITIS [None]
  - PYREXIA [None]
  - INFLUENZA LIKE ILLNESS [None]
  - FATIGUE [None]
